FAERS Safety Report 25661537 (Version 1)
Quarter: 2025Q3

REPORT INFORMATION
  Report Type: Spontaneous
  Country: US (occurrence: US)
  Receive Date: 20250808
  Receipt Date: 20250808
  Transmission Date: 20251020
  Serious: No
  Sender: ALKERMES
  Company Number: US-ALKERMES INC.-ALK-2025-002126

PATIENT

DRUGS (1)
  1. ARISTADA [Suspect]
     Active Substance: ARIPIPRAZOLE LAUROXIL
     Indication: Bipolar I disorder
     Route: 030

REACTIONS (3)
  - Needle issue [Recovered/Resolved]
  - Incorrect dose administered [Recovered/Resolved]
  - Off label use [Unknown]

NARRATIVE: CASE EVENT DATE: 20250804
